FAERS Safety Report 4721307-4 (Version None)
Quarter: 2005Q3

REPORT INFORMATION
  Report Type: 
  Country: None (occurrence: None)
  Receive Date: 20050721
  Receipt Date: 20040609
  Transmission Date: 20060218
  Serious: No
  Sender: FDA-Public Use
  Company Number: US-BRISTOL-MYERS SQUIBB COMPANY-12609962

PATIENT
  Age: 81 Year
  Sex: Female
  Weight: 60 kg

DRUGS (9)
  1. COUMADIN [Suspect]
     Indication: CORONARY ARTERY SURGERY
     Dosage: ON THERAPY FOR ABOUT 2 MONTHS
     Route: 048
  2. CARDIZEM [Concomitant]
  3. TOPROL-XL [Concomitant]
  4. SYNTHROID [Concomitant]
  5. LIPITOR [Concomitant]
  6. TRICOR [Concomitant]
  7. HYDROCHLOROTHIAZIDE [Concomitant]
  8. ACCUPRIL [Concomitant]
  9. ASPIRIN [Concomitant]

REACTIONS (1)
  - ECCHYMOSIS [None]
